FAERS Safety Report 16329935 (Version 5)
Quarter: 2019Q3

REPORT INFORMATION
  Report Type: Report from Study
  Country: AR (occurrence: AR)
  Receive Date: 20190520
  Receipt Date: 20190705
  Transmission Date: 20191004
  Serious: Yes (Hospitalization)
  Sender: FDA-Public Use
  Company Number: AR-GLAXOSMITHKLINE-AR2019086423

PATIENT
  Age: 27 Year
  Sex: Female
  Weight: 55 kg

DRUGS (6)
  1. BELIMUMAB SUBCUTANEOUS [Suspect]
     Active Substance: BELIMUMAB
     Indication: SYSTEMIC LUPUS ERYTHEMATOSUS
     Dosage: UNK
     Route: 058
     Dates: start: 20181011
  2. ENALAPRIL [Concomitant]
     Active Substance: ENALAPRIL
     Indication: VASCULITIS
     Dosage: 2.5 MG, 1D
     Route: 048
     Dates: start: 20190520
  3. METRONIDAZOLE. [Concomitant]
     Active Substance: METRONIDAZOLE
     Indication: VASCULITIS
     Dosage: 500 MG, TID
     Route: 042
     Dates: start: 20190520
  4. FLUCONAZOLE. [Concomitant]
     Active Substance: FLUCONAZOLE
     Indication: VASCULITIS
     Dosage: 100 MG, 1D
     Route: 048
     Dates: start: 20190520
  5. CIPROFLOXACIN. [Concomitant]
     Active Substance: CIPROFLOXACIN
     Indication: VASCULITIS
     Dosage: 200 MG, TID
     Route: 042
     Dates: start: 20190520
  6. RITUXIMAB. [Suspect]
     Active Substance: RITUXIMAB
     Indication: SYSTEMIC LUPUS ERYTHEMATOSUS
     Dosage: UNK
     Dates: start: 20181113

REACTIONS (1)
  - Vasculitis [Recovered/Resolved]

NARRATIVE: CASE EVENT DATE: 20190513
